FAERS Safety Report 24331846 (Version 3)
Quarter: 2024Q4

REPORT INFORMATION
  Report Type: Spontaneous
  Country: ES (occurrence: ES)
  Receive Date: 20240918
  Receipt Date: 20241008
  Transmission Date: 20250114
  Serious: Yes (Other)
  Sender: ALCON
  Company Number: ES-ALCON LABORATORIES-ALC2024ES004171

PATIENT

DRUGS (17)
  1. BSS [Suspect]
     Active Substance: CALCIUM CHLORIDE\MAGNESIUM CHLORIDE\POTASSIUM CHLORIDE\SODIUM ACETATE\SODIUM CHLORIDE\SODIUM CITRATE
     Indication: Cataract operation
     Dosage: UNK
     Route: 065
  2. CHONDROITIN SULFATE SODIUM NOS\HYALURONATE SODIUM [Suspect]
     Active Substance: CHONDROITIN SULFATE SODIUM NOS\HYALURONATE SODIUM
     Indication: Cataract operation
     Dosage: UNK
     Route: 065
  3. CARTEOLOL HYDROCHLORIDE [Suspect]
     Active Substance: CARTEOLOL HYDROCHLORIDE
     Indication: Product used for unknown indication
     Dosage: UNK
     Route: 065
  4. MAXIDEX OINTMENT [Suspect]
     Active Substance: DEXAMETHASONE SODIUM PHOSPHATE
     Indication: Postoperative care
     Dosage: 1 MG/ML
     Route: 065
  5. POVIDONE-IODINE [Suspect]
     Active Substance: POVIDONE-IODINE
     Indication: Cataract operation
     Dosage: UNK
     Route: 065
  6. POVIDONE-IODINE [Suspect]
     Active Substance: POVIDONE-IODINE
     Indication: Postoperative care
     Dosage: UNK
     Route: 065
  7. EPINEPHRINE [Concomitant]
     Active Substance: EPINEPHRINE
     Indication: Cataract operation
     Dosage: AMPOULE 1 MG/ML
     Route: 065
  8. BENOXINATE HYDROCHLORIDE\TETRACAINE HYDROCHLORIDE [Concomitant]
     Active Substance: BENOXINATE HYDROCHLORIDE\TETRACAINE HYDROCHLORIDE
     Indication: Cataract operation
     Dosage: UNK
     Route: 065
  9. TROPICAMIDE [Concomitant]
     Active Substance: TROPICAMIDE
     Indication: Cataract operation
     Dosage: UNK
     Route: 065
  10. POVIDONE-IODINE [Concomitant]
     Active Substance: POVIDONE-IODINE
     Indication: Interventional procedure
     Dosage: UNK
     Route: 065
  11. LIDOCAINE HYDROCHLORIDE [Concomitant]
     Active Substance: LIDOCAINE HYDROCHLORIDE
     Indication: Cataract operation
     Dosage: 200 MG/10 ML
     Route: 065
  12. LIDOCAINE HYDROCHLORIDE [Concomitant]
     Active Substance: LIDOCAINE HYDROCHLORIDE
     Indication: Preoperative care
     Dosage: UNK
     Route: 065
  13. PHENYLEPHRINE HYDROCHLORIDE [Concomitant]
     Active Substance: PHENYLEPHRINE HYDROCHLORIDE
     Indication: Cataract operation
     Dosage: 2 ML
     Route: 065
  14. PHENYLEPHRINE HYDROCHLORIDE [Concomitant]
     Active Substance: PHENYLEPHRINE HYDROCHLORIDE
     Indication: Cataract operation
     Dosage: UNK
     Route: 065
  15. POVIDONE-IODINE [Concomitant]
     Active Substance: POVIDONE-IODINE
     Indication: Cataract operation
     Dosage: 2 ML
     Route: 065
  16. SODIUM CHLORIDE [Concomitant]
     Active Substance: SODIUM CHLORIDE
     Indication: Cataract operation
     Dosage: UNK
     Route: 065
  17. VIGAMOX [Concomitant]
     Active Substance: MOXIFLOXACIN HYDROCHLORIDE
     Indication: Postoperative care
     Dosage: 5 MG/ML
     Route: 065

REACTIONS (1)
  - Candida endophthalmitis [Recovering/Resolving]

NARRATIVE: CASE EVENT DATE: 20240826
